FAERS Safety Report 6444494-9 (Version None)
Quarter: 2009Q4

REPORT INFORMATION
  Report Type: 
  Country: None (occurrence: None)
  Receive Date: 20091118
  Receipt Date: 20091113
  Transmission Date: 20100525
  Serious: Yes (Hospitalization)
  Sender: FDA-Public Use
  Company Number: DE-BAYER-200939332GPV

PATIENT
  Age: 77 Year
  Sex: Male
  Weight: 94 kg

DRUGS (3)
  1. SORAFENIB [Suspect]
     Indication: HEPATIC NEOPLASM MALIGNANT
     Route: 048
     Dates: start: 20090126, end: 20090308
  2. SORAFENIB [Suspect]
     Route: 048
     Dates: start: 20090309, end: 20090322
  3. SORAFENIB [Suspect]
     Route: 048
     Dates: start: 20090323

REACTIONS (2)
  - ALTERED STATE OF CONSCIOUSNESS [None]
  - FATIGUE [None]
